FAERS Safety Report 5324927-1 (Version None)
Quarter: 2007Q2

REPORT INFORMATION
  Report Type: 
  Country: None (occurrence: None)
  Receive Date: 20070515
  Receipt Date: 20070502
  Transmission Date: 20071010
  Serious: Yes (Hospitalization)
  Sender: FDA-Public Use
  Company Number: US-AMGEN-STX222224

PATIENT
  Sex: Female

DRUGS (1)
  1. ENBREL [Suspect]
     Indication: RHEUMATOID ARTHRITIS
     Route: 058
     Dates: start: 20040501

REACTIONS (9)
  - COLD SWEAT [None]
  - DYSPNOEA [None]
  - HYPERHIDROSIS [None]
  - NASOPHARYNGITIS [None]
  - PALLOR [None]
  - PNEUMONIA [None]
  - RHEUMATOID ARTHRITIS [None]
  - URINARY INCONTINENCE [None]
  - VOMITING [None]
